FAERS Safety Report 4995015-9 (Version None)
Quarter: 2006Q2

REPORT INFORMATION
  Report Type: 
  Country: None (occurrence: None)
  Receive Date: 20060508
  Receipt Date: 20060209
  Transmission Date: 20061013
  Serious: Yes (Hospitalization)
  Sender: FDA-Public Use
  Company Number: US-GLAXOSMITHKLINE-A0593064A

PATIENT
  Age: 81 Year
  Sex: Female

DRUGS (8)
  1. PAXIL [Suspect]
     Indication: DEPRESSION
     Dosage: 30MG PER DAY
     Route: 048
     Dates: start: 20050623, end: 20050715
  2. PAXIL CR [Suspect]
     Indication: DEPRESSION
     Dosage: 37.5MG PER DAY
     Route: 048
  3. ZYPREXA [Concomitant]
     Indication: ANXIETY
     Dosage: 5MG PER DAY
     Route: 048
  4. ZOCOR [Concomitant]
     Dosage: 200MG AT NIGHT
  5. COLACE [Concomitant]
     Indication: CONSTIPATION
     Dosage: 100MG TWICE PER DAY
     Route: 048
  6. GLUCOSAMINE [Concomitant]
     Indication: OSTEOARTHRITIS
     Route: 048
  7. OSCAL [Concomitant]
     Indication: OSTEOPOROSIS
  8. FOSAMAX [Concomitant]
     Indication: OSTEOPOROSIS
     Dosage: 35MG WEEKLY

REACTIONS (6)
  - CANDIDIASIS [None]
  - DRUG INEFFECTIVE [None]
  - HAEMATOCRIT DECREASED [None]
  - HAEMOGLOBIN DECREASED [None]
  - HIP FRACTURE [None]
  - SOMNOLENCE [None]
